FAERS Safety Report 9944623 (Version 1)
Quarter: 2014Q1

REPORT INFORMATION
  Report Type: Report from Study
  Country: US (occurrence: US)
  Receive Date: 20140303
  Receipt Date: 20140303
  Transmission Date: 20141002
  Serious: No
  Sender: FDA-Public Use
  Company Number: US-ABBVIE-13P-163-1052910-00

PATIENT
  Age: 23 Year
  Sex: Female
  Weight: 60.38 kg

DRUGS (6)
  1. HUMIRA [Suspect]
     Indication: CROHN^S DISEASE
     Dates: start: 201209
  2. CHEWABLE FLINSTONE MULTI-VITAMINS [Concomitant]
     Indication: PRODUCT USED FOR UNKNOWN INDICATION
  3. CHEWABLE VITAMIN C [Concomitant]
     Indication: PRODUCT USED FOR UNKNOWN INDICATION
  4. CALCIUM [Concomitant]
     Indication: PRODUCT USED FOR UNKNOWN INDICATION
  5. GILDESS [Concomitant]
     Indication: CONTRACEPTION
  6. ATIVAN [Concomitant]
     Indication: ANXIETY

REACTIONS (8)
  - Nasopharyngitis [Recovering/Resolving]
  - Rash macular [Not Recovered/Not Resolved]
  - Rash macular [Not Recovered/Not Resolved]
  - Ear pain [Recovering/Resolving]
  - Rash macular [Not Recovered/Not Resolved]
  - Rash macular [Not Recovered/Not Resolved]
  - Rash macular [Not Recovered/Not Resolved]
  - Rash macular [Not Recovered/Not Resolved]
